FAERS Safety Report 4296744-5 (Version None)
Quarter: 2004Q1

REPORT INFORMATION
  Report Type: 
  Country: None (occurrence: None)
  Receive Date: 20040126
  Receipt Date: 20030905
  Transmission Date: 20041129
  Serious: No
  Sender: FDA-Public Use
  Company Number: USA030946352

PATIENT
  Age: 7 Year
  Sex: Male
  Weight: 26 kg

DRUGS (2)
  1. STRATTERA [Suspect]
     Dosage: 25 MG/DAY
     Dates: start: 20030904
  2. RITALIN [Concomitant]

REACTIONS (4)
  - ABNORMAL BEHAVIOUR [None]
  - DISTURBANCE IN ATTENTION [None]
  - FATIGUE [None]
  - PALLOR [None]
